FAERS Safety Report 25908082 (Version 1)
Quarter: 2025Q4

REPORT INFORMATION
  Report Type: Spontaneous
  Country: EU (occurrence: EU)
  Receive Date: 20251010
  Receipt Date: 20251010
  Transmission Date: 20260117
  Serious: Yes (Other)
  Sender: ORGANON
  Company Number: None

PATIENT
  Age: 26 Year
  Sex: Female
  Weight: 78 kg

DRUGS (8)
  1. ETONOGESTREL [Suspect]
     Active Substance: ETONOGESTREL
     Indication: Contraception
     Dosage: 1 IMPLANT, 68 MG
     Dates: start: 20220303, end: 20250227
  2. ARCOXIA [Concomitant]
     Active Substance: ETORICOXIB
     Dosage: INTERMITENTE, S/P
  3. LEXATIN 3 mg CAPSULAS DURAS , 30 c?psulas [Concomitant]
     Dosage: 1-0-0
  4. SERTRALINA  ALTER 100 mg COMPRIMIDOS RECUBIERTOS CON PELICULA EFG , 30 [Concomitant]
     Dosage: 100 MILLIGRAM
  5. OMEPRAZOL ALTER 40 MG CAPSULAS DURAS GASTRORRESISTENTES 28 c?psulas (F [Concomitant]
     Dosage: UNK
  6. OPTOVITE B12 1.000 MICROGRAMOS SOLUCI?N INYECTABLE , 5 ampollas de 2 m [Concomitant]
  7. HIDROFEROL 0,266 MG CAPSULAS BLANDAS , 5 c?psulas (Blister PVC/PVDC-AL [Concomitant]
     Dosage: UNK
  8. FERRO SANOL 100 mg CAPSULAS GASTRORRESISTENTES , 50 c?psulas [Concomitant]
     Dosage: UNK

REACTIONS (2)
  - Hypoglycaemia [Recovered/Resolved]
  - Pancreatic failure [Recovered/Resolved]

NARRATIVE: CASE EVENT DATE: 20231201
